FAERS Safety Report 9022158 (Version 1)
Quarter: 2013Q1

REPORT INFORMATION
  Report Type: Spontaneous
  Country: US (occurrence: US)
  Receive Date: 20130118
  Receipt Date: 20130118
  Transmission Date: 20140127
  Serious: No
  Sender: FDA-Public Use
  Company Number: US-009507513-1301USA007409

PATIENT
  Age: 40 Year
  Sex: Male

DRUGS (2)
  1. VYTORIN [Suspect]
     Dosage: 10/40 MG QD
     Route: 048
  2. VYTORIN [Suspect]
     Dosage: 10/40 MG BID

REACTIONS (3)
  - Muscle spasms [Unknown]
  - Pain in extremity [Unknown]
  - Inappropriate schedule of drug administration [Unknown]
